FAERS Safety Report 8160317-4 (Version None)
Quarter: 2012Q1

REPORT INFORMATION
  Report Type: 
  Country: None (occurrence: None)
  Receive Date: 20120223
  Receipt Date: 20120214
  Transmission Date: 20120608
  Serious: Yes (Hospitalization)
  Sender: FDA-Public Use
  Company Number: FR-NAPPMUNDI-GBR-2012-0009760

PATIENT
  Sex: Female

DRUGS (18)
  1. IMOVANE [Concomitant]
     Dosage: 7.5 MG, DAILY
  2. SURVIMED RENAL [Concomitant]
  3. LANSOPRAZOLE [Concomitant]
     Dosage: 30 MG, DAILY
  4. LASIX [Concomitant]
     Dosage: 500 MG, 1/4 TABLET DAILY
  5. LUDIOMIL                           /00331902/ [Concomitant]
     Dosage: 25 MG, BID
  6. XYLOCAINE                          /00033402/ [Concomitant]
     Dosage: 5 UNK, DAILY
     Route: 002
  7. LEVOTHYROXINE SODIUM [Concomitant]
     Dosage: 50 MCG, DAILY
  8. SMECTA                             /01255901/ [Concomitant]
     Dosage: 1 UNIT, TID
  9. COVERSYL                           /00790702/ [Concomitant]
     Dosage: 2.5 MG, DAILY
  10. ALPRAZOLAM [Concomitant]
     Dosage: 0.25 MG, 1/2 TABLET TID
  11. LUMIGAN [Concomitant]
     Dosage: 0.3 MG/ML, 1 DROP DAILY
     Route: 047
  12. OXYCODONE HCL [Suspect]
     Indication: PAIN
     Dosage: 25 UNK, UNK
     Route: 048
     Dates: start: 20120203, end: 20120203
  13. PHLOROGLUCINOL [Concomitant]
     Dosage: 50 MG, QID PRN
  14. CORDARONE [Concomitant]
     Dosage: 200 MG, DAILY
  15. ACETAMINOPHEN [Concomitant]
     Dosage: 2 TABLET (OF 500 MG), QID
  16. OXYCODONE HCL [Suspect]
     Dosage: 25 MG, UNK
     Route: 048
     Dates: start: 20111123
  17. DURAGESIC-100 [Concomitant]
     Dosage: 12 MCG/HR, Q3D
     Route: 062
  18. IMODIUM [Concomitant]
     Indication: PROPHYLAXIS AGAINST DIARRHOEA
     Dosage: 2 MG, 6 TABLETS DAILY MAXIMUM

REACTIONS (4)
  - ACUTE RESPIRATORY FAILURE [None]
  - ACCIDENTAL OVERDOSE [None]
  - MIOSIS [None]
  - INCORRECT DOSE ADMINISTERED [None]
